FAERS Safety Report 5070291-5 (Version None)
Quarter: 2006Q3

REPORT INFORMATION
  Report Type: 
  Country: None (occurrence: None)
  Receive Date: 20060802
  Receipt Date: 20060717
  Transmission Date: 20061208
  Serious: Yes (Other)
  Sender: FDA-Public Use
  Company Number: TRP_0814_2006

PATIENT
  Age: 48 Year
  Sex: Male
  Weight: 77.1115 kg

DRUGS (4)
  1. RIBASPHERE [Suspect]
     Indication: HEPATITIS C
     Dosage: VAR BID PO
     Route: 048
     Dates: start: 20060601, end: 20060623
  2. PEG-INTRON [Suspect]
     Indication: HEPATITIS C
     Dosage: 0.5 ML QWK SC
     Route: 058
     Dates: start: 20060501, end: 20060623
  3. TRUBADA [Concomitant]
  4. VIRACEPT [Concomitant]

REACTIONS (2)
  - HALLUCINATION, AUDITORY [None]
  - PARANOIA [None]
